FAERS Safety Report 9336561 (Version 2)
Quarter: 2013Q2

REPORT INFORMATION
  Report Type: Spontaneous
  Country: US (occurrence: US)
  Receive Date: 20130607
  Receipt Date: 20130620
  Transmission Date: 20140414
  Serious: Yes (Disabling)
  Sender: FDA-Public Use
  Company Number: US-PFIZER INC-2013172514

PATIENT
  Age: 43 Year
  Sex: Female

DRUGS (7)
  1. LYRICA [Suspect]
     Indication: FIBROMYALGIA
     Dosage: 150 MG, 1X/DAY
  2. SAVELLA [Suspect]
     Indication: FIBROMYALGIA
     Dosage: 50 MG, 2X/DAY
  3. TRAZODONE [Concomitant]
     Dosage: (100, DAILY)
  4. XANAX [Concomitant]
     Dosage: 0.5 MG, AS NEEDED (Q8 HOURS)
  5. SIMVASTATIN [Concomitant]
     Dosage: 20 MG, (QHS)
  6. FLEXAR [Concomitant]
     Dosage: 10 MG, (Q 8 HR)
  7. LO/OVRAL [Concomitant]
     Dosage: UNK DAILY

REACTIONS (1)
  - Back pain [Unknown]
